FAERS Safety Report 7972665-9 (Version None)
Quarter: 2011Q4

REPORT INFORMATION
  Report Type: 
  Country: None (occurrence: None)
  Receive Date: 20111213
  Receipt Date: 20111205
  Transmission Date: 20120403
  Serious: Yes (Other)
  Sender: FDA-Public Use
  Company Number: US-JNJFOC-20111203199

PATIENT
  Age: 7 Decade
  Sex: Male

DRUGS (5)
  1. PRAVASTATIN [Suspect]
     Indication: PRODUCT USED FOR UNKNOWN INDICATION
     Route: 065
  2. PREZISTA [Suspect]
     Indication: HIV INFECTION
     Route: 048
  3. ISENTRESS [Suspect]
     Indication: HIV INFECTION
     Route: 065
  4. TRUVADA [Suspect]
     Indication: HIV INFECTION
     Route: 065
  5. PRAVASTATIN [Suspect]
     Route: 065

REACTIONS (1)
  - NEUROPATHY PERIPHERAL [None]
